FAERS Safety Report 13404669 (Version 1)
Quarter: 2017Q2

REPORT INFORMATION
  Report Type: Spontaneous
  Country: US (occurrence: US)
  Receive Date: 20170405
  Receipt Date: 20170405
  Transmission Date: 20170830
  Serious: No
  Sender: FDA-Public Use
  Company Number: US-PERRIGO-16US021453

PATIENT
  Sex: Female

DRUGS (3)
  1. ACETAMINOPHEN. [Suspect]
     Active Substance: ACETAMINOPHEN
     Dosage: UNK
     Route: 048
  2. ACETAMINOPHEN. [Suspect]
     Active Substance: ACETAMINOPHEN
     Indication: TOOTHACHE
     Dosage: 1950 MG, SINGLE AT 1400
     Route: 048
     Dates: start: 20161031, end: 20161031
  3. RENVELA [Concomitant]
     Active Substance: SEVELAMER CARBONATE
     Indication: RENAL DISORDER
     Dosage: 3 TABLETS BEFORE MEALS
     Route: 048

REACTIONS (1)
  - Incorrect dose administered [Recovered/Resolved]

NARRATIVE: CASE EVENT DATE: 20161031
